FAERS Safety Report 6975223-8 (Version None)
Quarter: 2010Q3

REPORT INFORMATION
  Report Type: 
  Country: None (occurrence: None)
  Receive Date: 20100910
  Receipt Date: 20090218
  Transmission Date: 20110219
  Serious: No
  Sender: FDA-Public Use
  Company Number: US-WYE-H08282009

PATIENT
  Sex: Female
  Weight: 69.46 kg

DRUGS (7)
  1. PRISTIQ [Suspect]
     Indication: ANXIETY
     Dosage: UNKNOWN
     Dates: end: 20081201
  2. FLUTICASONE PROPIONATE [Concomitant]
  3. RIZATRIPTAN BENZOATE [Concomitant]
  4. XYREM [Suspect]
     Indication: NARCOLEPSY
     Route: 048
     Dates: start: 20081114, end: 20080101
  5. XYREM [Suspect]
     Route: 048
     Dates: start: 20080101, end: 20080101
  6. XYREM [Suspect]
     Dosage: 9 GRAIN EVERY 1 DAY
     Route: 048
     Dates: start: 20080101, end: 20080101
  7. XYREM [Suspect]
     Route: 048
     Dates: start: 20080101

REACTIONS (7)
  - DISTURBANCE IN ATTENTION [None]
  - DIZZINESS [None]
  - INITIAL INSOMNIA [None]
  - INSOMNIA [None]
  - MIDDLE INSOMNIA [None]
  - POOR QUALITY SLEEP [None]
  - SOMNOLENCE [None]
